FAERS Safety Report 9814395 (Version 1)
Quarter: 2014Q1

REPORT INFORMATION
  Report Type: Spontaneous
  Country: AU (occurrence: AU)
  Receive Date: 20140113
  Receipt Date: 20140113
  Transmission Date: 20141002
  Serious: Yes (Hospitalization)
  Sender: FDA-Public Use
  Company Number: AU-BANPHARM-20141994

PATIENT
  Age: 35 Year
  Sex: Male

DRUGS (2)
  1. IBUPROFEN UNKNOWN PRODUCT [Suspect]
     Indication: TOOTH EXTRACTION
     Dosage: 1800 MG, QD,
     Dates: start: 2003
  2. CODEINE [Suspect]
     Indication: TOOTH EXTRACTION
     Dosage: 450-1153 MG,
     Dates: start: 2003

REACTIONS (2)
  - Small intestinal obstruction [Unknown]
  - Intentional drug misuse [Unknown]
